FAERS Safety Report 15976673 (Version 1)
Quarter: 2019Q1

REPORT INFORMATION
  Report Type: Report from Study
  Country: US (occurrence: US)
  Receive Date: 20190218
  Receipt Date: 20190218
  Transmission Date: 20190418
  Serious: Yes (Life-Threatening, Hospitalization)
  Sender: FDA-Public Use
  Company Number: US-ALEXION PHARMACEUTICALS INC.-A201902324

PATIENT
  Sex: Male

DRUGS (2)
  1. SOLIRIS [Suspect]
     Active Substance: ECULIZUMAB
     Indication: ATYPICAL HAEMOLYTIC URAEMIC SYNDROME
     Dosage: UNK
     Route: 065
  2. SOLIRIS [Suspect]
     Active Substance: ECULIZUMAB
     Dosage: 1200 MG, UNK
     Route: 065

REACTIONS (2)
  - Haemodialysis complication [Not Recovered/Not Resolved]
  - Cardiac disorder [Not Recovered/Not Resolved]
